FAERS Safety Report 25111951 (Version 2)
Quarter: 2025Q2

REPORT INFORMATION
  Report Type: Spontaneous
  Country: US (occurrence: US)
  Receive Date: 20250324
  Receipt Date: 20250421
  Transmission Date: 20250716
  Serious: Yes (Other)
  Sender: PFIZER
  Company Number: US-PFIZER INC-PV202500034468

PATIENT
  Age: 69 Year
  Sex: Male

DRUGS (2)
  1. INLYTA [Suspect]
     Active Substance: AXITINIB
  2. INLYTA [Suspect]
     Active Substance: AXITINIB

REACTIONS (5)
  - Skin cancer [Unknown]
  - Hypertension [Unknown]
  - Fatigue [Unknown]
  - Dysphonia [Not Recovered/Not Resolved]
  - Off label use [Unknown]
